APPROVED DRUG PRODUCT: FLAVOXATE HYDROCHLORIDE
Active Ingredient: FLAVOXATE HYDROCHLORIDE
Strength: 100MG
Dosage Form/Route: TABLET;ORAL
Application: A076234 | Product #001
Applicant: IMPAX PHARMACEUTICALS
Approved: Aug 28, 2003 | RLD: No | RS: No | Type: DISCN